FAERS Safety Report 8537851-8 (Version None)
Quarter: 2012Q3

REPORT INFORMATION
  Report Type: 
  Country: None (occurrence: None)
  Receive Date: 20120725
  Receipt Date: 20120712
  Transmission Date: 20120928
  Serious: No
  Sender: FDA-Public Use
  Company Number: US-ASTRAZENECA-2012SE48700

PATIENT
  Age: 63 Year
  Sex: Female

DRUGS (1)
  1. CRESTOR [Suspect]
     Route: 048

REACTIONS (7)
  - MENTAL IMPAIRMENT [None]
  - DIZZINESS [None]
  - DYSGEUSIA [None]
  - ARTHROPATHY [None]
  - CONFUSIONAL STATE [None]
  - MALAISE [None]
  - DEPRESSION [None]
